FAERS Safety Report 14497530 (Version 1)
Quarter: 2018Q1

REPORT INFORMATION
  Report Type: Spontaneous
  Country: US (occurrence: US)
  Receive Date: 20180206
  Receipt Date: 20180206
  Transmission Date: 20180509
  Serious: No
  Sender: FDA-Public Use
  Company Number: None

PATIENT
  Age: 73 Year
  Sex: Female

DRUGS (12)
  1. NORCO [Concomitant]
     Active Substance: ACETAMINOPHEN\HYDROCODONE BITARTRATE
  2. MONTELUKAST [Concomitant]
     Active Substance: MONTELUKAST SODIUM
  3. PRAVASTATIN. [Suspect]
     Active Substance: PRAVASTATIN
  4. OMEPRAZOLE. [Concomitant]
     Active Substance: OMEPRAZOLE
  5. LETAIRIS [Suspect]
     Active Substance: AMBRISENTAN
     Indication: PULMONARY ARTERIAL HYPERTENSION
     Route: 048
     Dates: start: 201701
  6. EFFEXOR XR [Suspect]
     Active Substance: VENLAFAXINE HYDROCHLORIDE
  7. NASALIDE [Concomitant]
     Active Substance: FLUNISOLIDE
  8. CLONAZEPAM. [Suspect]
     Active Substance: CLONAZEPAM
  9. REVATIO [Concomitant]
     Active Substance: SILDENAFIL CITRATE
  10. LASIX [Concomitant]
     Active Substance: FUROSEMIDE
  11. TEMAZEPAM. [Concomitant]
     Active Substance: TEMAZEPAM
  12. RESTASIS [Concomitant]
     Active Substance: CYCLOSPORINE

REACTIONS (2)
  - Inability to afford medication [None]
  - Drug dose omission [None]

NARRATIVE: CASE EVENT DATE: 20180205
